FAERS Safety Report 8419226-5 (Version None)
Quarter: 2012Q2

REPORT INFORMATION
  Report Type: 
  Country: None (occurrence: None)
  Receive Date: 20120607
  Receipt Date: 20120529
  Transmission Date: 20120825
  Serious: Yes (Death, Life-Threatening, Hospitalization)
  Sender: FDA-Public Use
  Company Number: MX-JNJFOC-20110709888

PATIENT
  Sex: Female
  Weight: 46.5 kg

DRUGS (12)
  1. GOLIMUMAB [Suspect]
     Route: 042
     Dates: start: 20110201
  2. GOLIMUMAB [Suspect]
     Route: 042
     Dates: start: 20101206
  3. PLACEBO [Suspect]
     Indication: RHEUMATOID ARTHRITIS
     Route: 042
     Dates: start: 20110502
  4. ACETAMINOPHEN [Concomitant]
     Indication: RHEUMATOID ARTHRITIS
     Route: 048
     Dates: start: 20050101
  5. FERROUS SULFATE TAB [Concomitant]
     Indication: ANAEMIA OF CHRONIC DISEASE
     Route: 048
     Dates: start: 20101025
  6. METHOTREXATE [Suspect]
     Indication: RHEUMATOID ARTHRITIS
  7. INDOMETHACIN [Concomitant]
     Indication: RHEUMATOID ARTHRITIS
     Route: 048
     Dates: start: 20040101
  8. GOLIMUMAB [Suspect]
     Route: 042
     Dates: start: 20110525
  9. GOLIMUMAB [Suspect]
     Indication: RHEUMATOID ARTHRITIS
     Route: 042
     Dates: start: 20110328
  10. GOLIMUMAB [Suspect]
     Route: 042
     Dates: start: 20101109
  11. FOLIC ACID [Concomitant]
     Indication: RHEUMATOID ARTHRITIS
     Route: 048
     Dates: start: 19920101
  12. PLACEBO [Suspect]
     Route: 042
     Dates: start: 20110224

REACTIONS (3)
  - MYOCARDIAL INFARCTION [None]
  - OESOPHAGITIS [None]
  - PNEUMONIA [None]
